FAERS Safety Report 4294982-9 (Version None)
Quarter: 2004Q1

REPORT INFORMATION
  Report Type: 
  Country: None (occurrence: None)
  Receive Date: 20040216
  Receipt Date: 20030408
  Transmission Date: 20041129
  Serious: No
  Sender: FDA-Public Use
  Company Number: US-GLAXOSMITHKLINE-A0403967A

PATIENT
  Age: 18 Year
  Sex: Female
  Weight: 50 kg

DRUGS (9)
  1. LAMICTAL [Suspect]
     Indication: BIPOLAR DISORDER
     Dosage: 100MG TWICE PER DAY
     Route: 048
     Dates: start: 20021209, end: 20030422
  2. ANTIBIOTICS [Suspect]
     Dates: start: 20030322
  3. EFFEXOR XR [Concomitant]
     Indication: DEPRESSION
     Dosage: 150MG TWICE PER DAY
     Route: 048
  4. SEROQUEL [Concomitant]
     Dosage: 400MG AT NIGHT
     Route: 048
  5. TRAZODONE HCL [Concomitant]
     Route: 048
     Dates: start: 20030307, end: 20030408
  6. PHENYLPROPANOLAMINE HCL [Concomitant]
     Route: 048
     Dates: start: 20030326, end: 20030408
  7. GUAIFENESIN [Concomitant]
     Dates: start: 20030326, end: 20030408
  8. AMOXICILLIN [Concomitant]
     Dates: start: 20030326, end: 20030408
  9. BENADRYL [Concomitant]
     Dosage: 25MG AT NIGHT
     Route: 048
     Dates: start: 20030408

REACTIONS (3)
  - ERYTHEMA MULTIFORME [None]
  - PRURITUS [None]
  - RASH ERYTHEMATOUS [None]
